FAERS Safety Report 11186286 (Version 2)
Quarter: 2015Q3

REPORT INFORMATION
  Report Type: Report from Study
  Country: JP (occurrence: JP)
  Receive Date: 20150612
  Receipt Date: 20150829
  Transmission Date: 20151125
  Serious: No
  Sender: FDA-Public Use
  Company Number: JP-009507513-1506JPN006880

PATIENT
  Age: 64 Year
  Sex: Male
  Weight: 66 kg

DRUGS (15)
  1. REBETOL [Suspect]
     Active Substance: RIBAVIRIN
     Dosage: 200 MG, QD
     Route: 048
     Dates: start: 20130624, end: 20140811
  2. LASIX [Concomitant]
     Active Substance: FUROSEMIDE
     Indication: ASCITES
     Dosage: 40 MG, BID, FORMULATION: POR
     Route: 048
     Dates: start: 20120829, end: 20120829
  3. LOXONIN [Concomitant]
     Active Substance: LOXOPROFEN SODIUM
     Indication: PYREXIA
     Dosage: 60 MG, UNK, FORMULATION: POR
     Route: 048
     Dates: start: 20120606
  4. PROMAC (POLAPREZINC) [Concomitant]
     Active Substance: POLAPREZINC
     Indication: GASTRIC ULCER
     Dosage: 150 MG, BID, FORMULATION: GRA
     Route: 048
     Dates: start: 20120613
  5. SELARA [Concomitant]
     Active Substance: EPLERENONE
     Indication: ASCITES
     Dosage: 50 MG, QD, FORMULATION: POR
     Route: 048
     Dates: start: 20130204
  6. LANSOPRAZOLE. [Concomitant]
     Active Substance: LANSOPRAZOLE
     Indication: GASTRIC ULCER
     Dosage: 30 MG, QD
     Route: 048
     Dates: start: 20130508
  7. PEGINTRON [Suspect]
     Active Substance: PEGINTERFERON ALFA-2B
     Dosage: 50 MICROGRAM, QW
     Route: 058
     Dates: start: 20130624, end: 20140811
  8. ALLEGRA [Concomitant]
     Active Substance: FEXOFENADINE HYDROCHLORIDE
     Indication: RHINITIS ALLERGIC
     Dosage: 120 MG, BID, FORMULATION: POR
     Route: 048
     Dates: start: 20120317, end: 20140602
  9. LEVEMIR [Concomitant]
     Active Substance: INSULIN DETEMIR
     Indication: DIABETES MELLITUS
     Dosage: 4 DF, FREQUENCY AS PRESCRIBED
     Route: 058
     Dates: start: 20120606
  10. ALLOPURINOL. [Concomitant]
     Active Substance: ALLOPURINOL
     Indication: HYPERURICAEMIA
     Dosage: 200 MG, BID, , FORMULATION: POR
     Route: 048
     Dates: start: 20120903
  11. URSO [Concomitant]
     Active Substance: URSODIOL
     Indication: CHRONIC HEPATITIS C
     Dosage: 100 MG, TID, FORMULATION: POR
     Route: 048
     Dates: start: 20120702
  12. REBETOL [Suspect]
     Active Substance: RIBAVIRIN
     Indication: HEPATIC CIRRHOSIS
     Dosage: 200 MG, QD
     Route: 048
     Dates: start: 20130204, end: 20130415
  13. PEGINTRON [Suspect]
     Active Substance: PEGINTERFERON ALFA-2B
     Indication: HEPATIC CIRRHOSIS
     Dosage: 50 MICROGRAM, QW
     Route: 058
     Dates: start: 20130204, end: 20130415
  14. NOVORAPID [Concomitant]
     Active Substance: INSULIN ASPART
     Indication: DIABETES MELLITUS
     Dosage: 6 DF, FREQUENCY AS PRESCRIBED
     Route: 058
     Dates: start: 20120606
  15. RINDERON V [Concomitant]
     Active Substance: BETAMETHASONE VALERATE
     Indication: PRURITUS
     Dosage: 10 G, FREQUENCY AS PRESCRIBED
     Route: 061
     Dates: start: 20120613

REACTIONS (5)
  - Neuropathy peripheral [Recovering/Resolving]
  - Pharyngitis [Recovering/Resolving]
  - Sinusitis [Recovering/Resolving]
  - Insomnia [Recovering/Resolving]
  - Xeroderma [Recovering/Resolving]

NARRATIVE: CASE EVENT DATE: 20130918
